FAERS Safety Report 6517030-6 (Version None)
Quarter: 2009Q4

REPORT INFORMATION
  Report Type: 
  Country: None (occurrence: None)
  Receive Date: 20091223
  Receipt Date: 20091211
  Transmission Date: 20100525
  Serious: Yes (Death)
  Sender: FDA-Public Use
  Company Number: JP-PFIZER INC-2009288823

PATIENT
  Sex: Female
  Weight: 41 kg

DRUGS (4)
  1. SUNITINIB MALATE [Suspect]
     Indication: RENAL CELL CARCINOMA
     Dosage: 25 MG, 1X/DAY
     Dates: start: 20090622, end: 20090630
  2. TAKEPRON [Concomitant]
     Route: 048
     Dates: end: 20090630
  3. OXYCONTIN [Concomitant]
     Route: 048
     Dates: start: 20090629, end: 20090630
  4. LACTEC [Concomitant]
     Dosage: UNK
     Route: 042
     Dates: start: 20090629, end: 20090630

REACTIONS (2)
  - HEPATIC ENZYME INCREASED [None]
  - PANCREATIC ENZYMES INCREASED [None]
